FAERS Safety Report 7171030-4 (Version None)
Quarter: 2010Q4

REPORT INFORMATION
  Report Type: 
  Country: None (occurrence: None)
  Receive Date: 20101217
  Receipt Date: 20101208
  Transmission Date: 20110411
  Serious: Yes (Hospitalization)
  Sender: FDA-Public Use
  Company Number: US-JNJFOC-20101203717

PATIENT
  Age: 61 Year
  Sex: Female
  Weight: 82.56 kg

DRUGS (20)
  1. REMICADE [Suspect]
     Indication: SARCOIDOSIS
     Route: 042
  2. TOPROL-XL [Concomitant]
  3. VERAPAMIL [Concomitant]
  4. HYDROCHLOROTHIAZIDE [Concomitant]
  5. ZOCOR [Concomitant]
  6. FIORICET [Concomitant]
  7. TRAMADOL HCL [Concomitant]
  8. MOTRIN [Concomitant]
  9. PLAQUENIL [Concomitant]
  10. IMMUNE GLOBULIN NOS [Concomitant]
     Route: 042
  11. NEURONTIN [Concomitant]
  12. EFFEXOR [Concomitant]
  13. ATIVAN [Concomitant]
  14. BONIVA [Concomitant]
  15. ADVAIR [Concomitant]
  16. ALBUTEROL [Concomitant]
  17. VITAMIN D [Concomitant]
  18. ONDANSETRON [Concomitant]
  19. INSULIN [Concomitant]
     Dosage: VIA PUMP
  20. PROAIR HFA [Concomitant]

REACTIONS (1)
  - BREAST CANCER [None]
